FAERS Safety Report 16130747 (Version 3)
Quarter: 2019Q2

REPORT INFORMATION
  Report Type: Spontaneous
  Country: DE (occurrence: DE)
  Receive Date: 20190328
  Receipt Date: 20190411
  Transmission Date: 20190711
  Serious: Yes (Hospitalization, Other)
  Sender: FDA-Public Use
  Company Number: DE-MYLANLABS-2019M1026146

PATIENT
  Age: 14 Year
  Sex: Female
  Weight: 76.6 kg

DRUGS (3)
  1. CITALOPRAM [Suspect]
     Active Substance: CITALOPRAM HYDROBROMIDE
     Indication: MAJOR DEPRESSION
     Dosage: 20 MILLIGRAM, QD,OVERDOSE: 60 MG
     Route: 065
  2. CITALOPRAM [Suspect]
     Active Substance: CITALOPRAM HYDROBROMIDE
     Dosage: 60 MILLIGRAM, QD (INCREASED FROM 20 MG TO 60 MG DAILY, LATER 800 MG AS A SINGLE DOSE)
     Route: 065
  3. CITALOPRAM [Suspect]
     Active Substance: CITALOPRAM HYDROBROMIDE
     Dosage: 800 MILLIGRAM, TOTAL,OVERDOSE: 800 MG
     Route: 065

REACTIONS (9)
  - Suicide attempt [Recovered/Resolved]
  - Prescribed overdose [Unknown]
  - Electrocardiogram QT prolonged [Recovered/Resolved]
  - Somnolence [Recovered/Resolved]
  - Nervous system disorder [Recovered/Resolved]
  - Dizziness [Recovered/Resolved]
  - Intentional overdose [Unknown]
  - Product use issue [Unknown]
  - Toxicity to various agents [Recovered/Resolved]
